FAERS Safety Report 13049285 (Version 1)
Quarter: 2016Q4

REPORT INFORMATION
  Report Type: Spontaneous
  Country: US (occurrence: US)
  Receive Date: 20161221
  Receipt Date: 20161221
  Transmission Date: 20170207
  Serious: Yes (Life-Threatening, Hospitalization, Other)
  Sender: FDA-Public Use
  Company Number: US-BRISTOL-MYERS SQUIBB COMPANY-BMS-2016-106981

PATIENT
  Sex: Male

DRUGS (2)
  1. OPDIVO [Suspect]
     Active Substance: NIVOLUMAB
     Indication: BRAIN NEOPLASM MALIGNANT
     Route: 065
  2. OPDIVO [Suspect]
     Active Substance: NIVOLUMAB
     Indication: LUNG CANCER METASTATIC
     Route: 050

REACTIONS (8)
  - Thrombosis [Unknown]
  - Adrenal disorder [Unknown]
  - Product use issue [Unknown]
  - Fungal skin infection [Recovered/Resolved]
  - Pruritus [Unknown]
  - Pyrexia [Unknown]
  - Organ failure [Unknown]
  - Fatigue [Unknown]
